FAERS Safety Report 23513413 (Version 1)
Quarter: 2024Q1

REPORT INFORMATION
  Report Type: Spontaneous
  Country: CA (occurrence: None)
  Receive Date: 20240212
  Receipt Date: 20240212
  Transmission Date: 20240410
  Serious: Yes (Other)
  Sender: FDA-Public Use
  Company Number: 2024A031009

PATIENT
  Age: 21 Year
  Sex: Female

DRUGS (6)
  1. PULMICORT TURBUHALER [Suspect]
     Active Substance: BUDESONIDE
     Indication: Dyspnoea
  2. BILASTINE [Suspect]
     Active Substance: BILASTINE
     Indication: Pruritus
     Dosage: 20.0MG UNKNOWN
  3. CLARITIN [Suspect]
     Active Substance: LORATADINE
     Indication: Pruritus
  4. CLARITIN [Suspect]
     Active Substance: LORATADINE
     Indication: Pruritus
  5. MONTELUKAST SODIUM [Suspect]
     Active Substance: MONTELUKAST SODIUM
     Indication: Product used for unknown indication
     Route: 048
  6. RUPATADINE [Suspect]
     Active Substance: RUPATADINE
     Indication: Pruritus

REACTIONS (4)
  - Chronic spontaneous urticaria [Unknown]
  - Dyspnoea [Unknown]
  - Angioedema [Unknown]
  - Urticaria [Unknown]
